FAERS Safety Report 5270838-X (Version None)
Quarter: 2007Q1

REPORT INFORMATION
  Report Type: 
  Country: None (occurrence: None)
  Receive Date: 20070319
  Receipt Date: 20070319
  Transmission Date: 20070707
  Serious: No
  Sender: FDA-Public Use
  Company Number: None

PATIENT

DRUGS (3)
  1. PROPOFOL (50 MG) [Suspect]
  2. ETOMIDATE (15 MG) [Suspect]
  3. FENTANYL [Suspect]

REACTIONS (27)
  - ACCIDENT [None]
  - ADVERSE DRUG REACTION [None]
  - ANAESTHETIC COMPLICATION [None]
  - ATRIOVENTRICULAR BLOCK [None]
  - BRADYCARDIA [None]
  - BRAIN OEDEMA [None]
  - CARDIAC ARREST [None]
  - CARDIAC VALVE DISEASE [None]
  - CARDIOMEGALY [None]
  - CONNECTIVE TISSUE NEOPLASM [None]
  - CONVULSION [None]
  - ELECTROMECHANICAL DISSOCIATION [None]
  - HYPERTENSIVE HEART DISEASE [None]
  - HYPOTENSION [None]
  - LARYNGEAL STENOSIS [None]
  - MITRAL VALVE DISEASE [None]
  - PROCEDURAL COMPLICATION [None]
  - PULMONARY OEDEMA [None]
  - PULSE ABSENT [None]
  - PYREXIA [None]
  - RENAL FAILURE ACUTE [None]
  - RESPIRATORY ARREST [None]
  - RHYTHM IDIOVENTRICULAR [None]
  - SUBARACHNOID HAEMORRHAGE [None]
  - ULCER [None]
  - UNRESPONSIVE TO STIMULI [None]
  - VENTRICULAR HYPERTROPHY [None]
